FAERS Safety Report 17287242 (Version 3)
Quarter: 2022Q2

REPORT INFORMATION
  Report Type: Spontaneous
  Country: US (occurrence: US)
  Receive Date: 20200120
  Receipt Date: 20220607
  Transmission Date: 20220721
  Serious: Yes (Death, Other)
  Sender: FDA-Public Use
  Company Number: US-JNJFOC-20200117214

PATIENT

DRUGS (2)
  1. IMBRUVICA [Suspect]
     Active Substance: IBRUTINIB
     Indication: B-cell lymphoma
     Route: 048
  2. SELINEXOR [Suspect]
     Active Substance: SELINEXOR
     Indication: B-cell lymphoma
     Dosage: 1-2 TIMES WEEKLY
     Route: 048

REACTIONS (31)
  - Cataract [Unknown]
  - Blood alkaline phosphatase increased [Unknown]
  - Pancreatitis [Unknown]
  - Weight increased [Unknown]
  - Multiple organ dysfunction syndrome [Unknown]
  - Infection [Fatal]
  - Neutropenia [Unknown]
  - Anaemia [Unknown]
  - Hypertension [Unknown]
  - Upper respiratory tract infection [Unknown]
  - Pneumonitis [Unknown]
  - Haemorrhage [Unknown]
  - Nausea [Unknown]
  - Diarrhoea [Unknown]
  - Thrombocytopenia [Unknown]
  - Hypoxia [Unknown]
  - Atrial fibrillation [Unknown]
  - Arrhythmia [Recovered/Resolved]
  - Lymphopenia [Unknown]
  - Lymphocyte count increased [Unknown]
  - Tachycardia [Unknown]
  - Decreased appetite [Unknown]
  - Weight decreased [Unknown]
  - Fatigue [Unknown]
  - Hyponatraemia [Unknown]
  - Hyperglycaemia [Unknown]
  - Bone pain [Unknown]
  - Fall [Unknown]
  - Arthralgia [Unknown]
  - Hypophosphataemia [Unknown]
  - Cognitive disorder [Unknown]
